FAERS Safety Report 13042604 (Version 1)
Quarter: 2016Q4

REPORT INFORMATION
  Report Type: Spontaneous
  Country: IT (occurrence: IT)
  Receive Date: 20161219
  Receipt Date: 20161219
  Transmission Date: 20170207
  Serious: Yes (Hospitalization)
  Sender: FDA-Public Use
  Company Number: IT-MYLANLABS-2016M1055474

PATIENT

DRUGS (1)
  1. PROPAFENONE. [Suspect]
     Active Substance: PROPAFENONE
     Indication: ARRHYTHMIA SUPRAVENTRICULAR
     Dosage: 450 MG DAILY
     Route: 048
     Dates: start: 200106

REACTIONS (1)
  - Hepatitis cholestatic [Unknown]
